FAERS Safety Report 6841654-X (Version None)
Quarter: 2010Q3

REPORT INFORMATION
  Report Type: 
  Country: None (occurrence: None)
  Receive Date: 20100714
  Receipt Date: 20080314
  Transmission Date: 20110219
  Serious: No
  Sender: FDA-Public Use
  Company Number: US-PFIZER INC-2007057551

PATIENT
  Sex: Female
  Weight: 45.36 kg

DRUGS (9)
  1. CHANTIX [Suspect]
     Indication: SMOKING CESSATION THERAPY
     Route: 048
     Dates: start: 20070627, end: 20070703
  2. AVELOX [Suspect]
     Indication: OROPHARYNGEAL PAIN
  3. ADVAIR DISKUS 100/50 [Concomitant]
  4. NASONEX [Concomitant]
  5. PLAQUENIL [Concomitant]
  6. ADVIL LIQUI-GELS [Concomitant]
  7. XANAX [Concomitant]
  8. DALMANE [Concomitant]
  9. AVAPRO [Concomitant]

REACTIONS (10)
  - ABNORMAL DREAMS [None]
  - DRUG INTOLERANCE [None]
  - INSOMNIA [None]
  - NIGHTMARE [None]
  - OROPHARYNGEAL PAIN [None]
  - PRURITUS [None]
  - RASH [None]
  - THINKING ABNORMAL [None]
  - VOMITING [None]
  - VULVOVAGINAL MYCOTIC INFECTION [None]
